FAERS Safety Report 7955786-6 (Version None)
Quarter: 2011Q4

REPORT INFORMATION
  Report Type: 
  Country: None (occurrence: None)
  Receive Date: 20111205
  Receipt Date: 20111128
  Transmission Date: 20120403
  Serious: Yes (Hospitalization, Other)
  Sender: FDA-Public Use
  Company Number: DE-BIOGENIDEC-2009BI018360

PATIENT
  Age: 35 Year
  Sex: Female
  Weight: 72 kg

DRUGS (5)
  1. NATALIZUMAB [Suspect]
     Indication: MULTIPLE SCLEROSIS
     Route: 042
     Dates: start: 20061001, end: 20090401
  2. METRONIDAZOLE VAGINAL [Concomitant]
     Indication: VAGINITIS BACTERIAL
     Route: 067
     Dates: start: 20090701, end: 20090708
  3. COPAXONE [Concomitant]
     Dates: start: 20100901
  4. CITALOPRAM [Concomitant]
     Route: 048
  5. LEVOTHYROXINE SODIUM [Concomitant]
     Route: 048
     Dates: start: 20080101

REACTIONS (2)
  - PROGRESSIVE MULTIFOCAL LEUKOENCEPHALOPATHY [None]
  - IMMUNE RECONSTITUTION SYNDROME [None]
